FAERS Safety Report 17837538 (Version 1)
Quarter: 2020Q2

REPORT INFORMATION
  Report Type: Spontaneous
  Country: US (occurrence: US)
  Receive Date: 20200528
  Receipt Date: 20200528
  Transmission Date: 20200714
  Serious: No
  Sender: FDA-Public Use
  Company Number: US-SIGMAPHARM LABORATORIES, LLC-2020SIG00028

PATIENT
  Age: 73 Year
  Sex: Female
  Weight: 59.86 kg

DRUGS (6)
  1. WARFARIN [Concomitant]
     Active Substance: WARFARIN
     Dosage: 5 MG, 1X/DAY UNTIL FOLLOW UP WITH MD ON 05-MAR-2020
     Route: 048
     Dates: start: 20200226
  2. STATIN (UNSPECIFIED) [Concomitant]
     Active Substance: UNSPECIFIED INGREDIENT
  3. WARFARIN [Concomitant]
     Active Substance: WARFARIN
     Dosage: 10 MG, ONCE
     Route: 048
     Dates: start: 20200225, end: 20200225
  4. WARFARIN [Concomitant]
     Active Substance: WARFARIN
     Dosage: 5 MG, 5X/WEEK
     Route: 048
     Dates: start: 1995, end: 20200225
  5. ACITRETIN. [Suspect]
     Active Substance: ACITRETIN
     Indication: PROPHYLAXIS
     Dosage: 10 MG, 1X/DAY IN THE EVENING WITH DINNER
     Route: 048
     Dates: start: 202002, end: 20200224
  6. BLOOD PRESSURE MEDICATION (UNSPECIFIED) [Concomitant]

REACTIONS (16)
  - Pruritus [Recovered/Resolved]
  - Rash erythematous [Recovering/Resolving]
  - Sensory disturbance [Recovered/Resolved]
  - Skin burning sensation [Recovered/Resolved]
  - Irritability [Recovered/Resolved]
  - Skin fissures [Recovered/Resolved]
  - Skin haemorrhage [Recovered/Resolved]
  - Scab [Recovered/Resolved]
  - Product dose omission [Recovered/Resolved]
  - Headache [Recovered/Resolved]
  - Skin exfoliation [Recovering/Resolving]
  - International normalised ratio decreased [Unknown]
  - Periorbital swelling [Recovering/Resolving]
  - Peripheral swelling [Recovered/Resolved]
  - Inflammation [Recovered/Resolved]
  - Off label use [Recovered/Resolved]

NARRATIVE: CASE EVENT DATE: 202002
